FAERS Safety Report 11054230 (Version 6)
Quarter: 2015Q3

REPORT INFORMATION
  Report Type: Report from Study
  Country: MX (occurrence: MX)
  Receive Date: 20150422
  Receipt Date: 20150825
  Transmission Date: 20151125
  Serious: Yes (Hospitalization, Disabling)
  Sender: FDA-Public Use
  Company Number: MX-ROCHE-1523663

PATIENT
  Age: 65 Year
  Sex: Female
  Weight: 64 kg

DRUGS (9)
  1. CIPROFLOXACIN. [Concomitant]
     Active Substance: CIPROFLOXACIN
     Indication: INFECTION
     Dosage: FOR 14 DAYS.
     Route: 048
  2. MABTHERA [Suspect]
     Active Substance: RITUXIMAB
     Indication: RHEUMATOID ARTHRITIS
     Route: 065
     Dates: start: 2010
  3. CELEBREX [Concomitant]
     Active Substance: CELECOXIB
     Dosage: 1 TABLET AT THE NIGHT
     Route: 048
  4. FOLIC ACID. [Concomitant]
     Active Substance: FOLIC ACID
  5. LEVOTHYROXINE. [Concomitant]
     Active Substance: LEVOTHYROXINE
  6. METHOTREXATE (METHOTREXATE SODIUM) [Concomitant]
     Active Substance: METHOTREXATE SODIUM
  7. SYSTANE BALANCE [Concomitant]
     Active Substance: PROPYLENE GLYCOL
  8. MABTHERA [Suspect]
     Active Substance: RITUXIMAB
     Dosage: HALF DOSES EVERY 2 WEEKS., 0.5 MG EVERY TWO WEEKS
     Route: 065
     Dates: start: 20141116
  9. OMEPRAZOL [Concomitant]
     Active Substance: OMEPRAZOLE
     Indication: GASTRITIS
     Route: 048

REACTIONS (17)
  - Influenza [Recovered/Resolved]
  - Pain [Recovering/Resolving]
  - Breast fibrosis [Recovering/Resolving]
  - Loss of dreaming [Not Recovered/Not Resolved]
  - Headache [Not Recovered/Not Resolved]
  - Salmonellosis [Recovering/Resolving]
  - Urinary tract infection [Recovering/Resolving]
  - Thyroid disorder [Unknown]
  - Insomnia [Not Recovered/Not Resolved]
  - Bronchitis [Recovering/Resolving]
  - Cough [Recovered/Resolved]
  - Asthma [Not Recovered/Not Resolved]
  - Weight increased [Not Recovered/Not Resolved]
  - Deformity [Unknown]
  - Weight decreased [Recovering/Resolving]
  - Muscle rigidity [Unknown]
  - Eye pain [Not Recovered/Not Resolved]

NARRATIVE: CASE EVENT DATE: 2011
